FAERS Safety Report 6166541-4 (Version None)
Quarter: 2009Q2

REPORT INFORMATION
  Report Type: 
  Country: None (occurrence: None)
  Receive Date: 20090424
  Receipt Date: 20090421
  Transmission Date: 20091009
  Serious: Yes (Death, Other)
  Sender: FDA-Public Use
  Company Number: CA-ROCHE-628729

PATIENT
  Sex: Female

DRUGS (1)
  1. CAPECITABINE [Suspect]
     Indication: GALLBLADDER CANCER METASTATIC
     Route: 048
     Dates: start: 20081128

REACTIONS (2)
  - DEATH [None]
  - DRUG INEFFECTIVE [None]
